FAERS Safety Report 18724636 (Version 1)
Quarter: 2021Q1

REPORT INFORMATION
  Report Type: Spontaneous
  Country: US (occurrence: US)
  Receive Date: 20210111
  Receipt Date: 20210111
  Transmission Date: 20210419
  Serious: Yes (Death, Hospitalization)
  Sender: FDA-Public Use
  Company Number: US-STRIDES ARCOLAB LIMITED-2021SP000265

PATIENT
  Age: 57 Year
  Sex: Female

DRUGS (6)
  1. SORAFENIB [Interacting]
     Active Substance: SORAFENIB
     Indication: AUTOLOGOUS HAEMATOPOIETIC STEM CELL TRANSPLANT
     Dosage: UNK
     Route: 065
  2. ANTITHYMOCYTE IMMUNOGLOBULIN [Concomitant]
     Active Substance: THYMOCYTE IMMUNE GLOBULIN NOS
     Indication: STEM CELL TRANSPLANT
     Dosage: UNK
     Route: 065
  3. TACROLIMUS. [Suspect]
     Active Substance: TACROLIMUS
     Indication: AUTOLOGOUS HAEMATOPOIETIC STEM CELL TRANSPLANT
     Dosage: UNK
     Route: 065
  4. TACROLIMUS. [Interacting]
     Active Substance: TACROLIMUS
     Dosage: UNK
     Route: 065
  5. MYCOPHENOLATE MOFETIL. [Suspect]
     Active Substance: MYCOPHENOLATE MOFETIL
     Indication: AUTOLOGOUS HAEMATOPOIETIC STEM CELL TRANSPLANT
     Dosage: UNK
     Route: 065
  6. SORAFENIB [Interacting]
     Active Substance: SORAFENIB
     Dosage: UNK
     Route: 065

REACTIONS (6)
  - Sepsis [Fatal]
  - Acute kidney injury [Not Recovered/Not Resolved]
  - Toxicity to various agents [Unknown]
  - Off label use [Unknown]
  - Drug interaction [Unknown]
  - Thrombotic microangiopathy [Unknown]
